FAERS Safety Report 8318509-7 (Version None)
Quarter: 2012Q2

REPORT INFORMATION
  Report Type: 
  Country: None (occurrence: None)
  Receive Date: 20120427
  Receipt Date: 20120418
  Transmission Date: 20120825
  Serious: Yes (Hospitalization)
  Sender: FDA-Public Use
  Company Number: US-GLAXOSMITHKLINE-A0974194A

PATIENT
  Age: 10 Year
  Sex: Male

DRUGS (5)
  1. BENADRYL [Concomitant]
  2. SUMATRIPTAN NASAL SPRAY [Concomitant]
  3. ONDANSETRON [Suspect]
     Indication: CYCLIC VOMITING SYNDROME
     Dosage: 3ML AS REQUIRED
     Route: 042
     Dates: start: 20120101
  4. ATIVAN [Concomitant]
  5. ZOFRAN [Suspect]
     Indication: CYCLIC VOMITING SYNDROME
     Dosage: 2ML AS REQUIRED
     Route: 042
     Dates: start: 20060101, end: 20120101

REACTIONS (7)
  - DRUG ADMINISTRATION ERROR [None]
  - CONSTIPATION [None]
  - INCORRECT DOSE ADMINISTERED [None]
  - BLOOD POTASSIUM DECREASED [None]
  - ADVERSE DRUG REACTION [None]
  - DRUG INEFFECTIVE [None]
  - VOMITING [None]
